FAERS Safety Report 4392968-7 (Version None)
Quarter: 2004Q3

REPORT INFORMATION
  Report Type: 
  Country: None (occurrence: None)
  Receive Date: 20040708
  Receipt Date: 20040708
  Transmission Date: 20050211
  Serious: Yes (Other)
  Sender: FDA-Public Use
  Company Number: None

PATIENT
  Age: 74 Year
  Sex: Female
  Weight: 58.514 kg

DRUGS (4)
  1. CRESTOR [Suspect]
     Indication: HYPERLIPIDAEMIA
     Dosage: 20 MG
  2. DYNACIRC [Concomitant]
  3. FOSINOPRIL SODIUM [Concomitant]
  4. OMEPRAZOLE [Concomitant]

REACTIONS (1)
  - MUSCLE SPASMS [None]
